FAERS Safety Report 12512310 (Version 1)
Quarter: 2016Q2

REPORT INFORMATION
  Report Type: Spontaneous
  Country: US (occurrence: None)
  Receive Date: 20160629
  Receipt Date: 20160629
  Transmission Date: 20160815
  Serious: Yes (Other)
  Sender: FDA-Public Use
  Company Number: None

PATIENT
  Age: 51 Year
  Sex: Male
  Weight: 120.2 kg

DRUGS (4)
  1. ANDROGEL [Suspect]
     Active Substance: TESTOSTERONE
     Indication: BLOOD TESTOSTERONE DECREASED
     Dosage: 2 PUMP IN THE MORNING APPLIED TO A SURFACE, USUALLY THE SKIN
     Dates: start: 20060509, end: 20150227
  2. FISH OIL [Concomitant]
     Active Substance: FISH OIL
  3. PRILOSEC [Concomitant]
     Active Substance: OMEPRAZOLE MAGNESIUM
  4. PARLODEL [Suspect]
     Active Substance: BROMOCRIPTINE MESYLATE
     Indication: BLOOD PROLACTIN INCREASED
     Route: 048
     Dates: start: 20050304, end: 20150227

REACTIONS (6)
  - Thinking abnormal [None]
  - Executive dysfunction [None]
  - Hypomania [None]
  - Judgement impaired [None]
  - Impulse-control disorder [None]
  - Abnormal behaviour [None]

NARRATIVE: CASE EVENT DATE: 20150227
